FAERS Safety Report 8461476 (Version 4)
Quarter: 2013Q1

REPORT INFORMATION
  Report Type: Report from Study
  Country: DE (occurrence: DE)
  Receive Date: 20120315
  Receipt Date: 20130125
  Transmission Date: 20140127
  Serious: Yes (Death, Hospitalization)
  Sender: FDA-Public Use
  Company Number: DE-BRISTOL-MYERS SQUIBB COMPANY-16436727

PATIENT
  Age: 61 Year
  Sex: Male
  Weight: 64.1 kg

DRUGS (10)
  1. CISPLATIN [Suspect]
     Indication: NON-SMALL CELL LUNG CANCER
     Dosage: 3RD INF 14JUN10
     Route: 042
     Dates: start: 20100521
  2. NECITUMUMAB [Suspect]
     Indication: NON-SMALL CELL LUNG CANCER
     Dosage: LIQ
     Route: 042
     Dates: start: 20100520
  3. PEMETREXED DISODIUM [Suspect]
     Indication: NON-SMALL CELL LUNG CANCER
     Dosage: 3RD INF 14JUN10
     Route: 042
     Dates: start: 20100521
  4. VOLTAREN [Concomitant]
  5. DECORTIN [Concomitant]
     Dates: start: 20100424
  6. ACC [Concomitant]
  7. NEXIUM [Concomitant]
     Dates: start: 20100421
  8. FOLSAN [Concomitant]
     Dates: start: 20100520
  9. UNACID [Concomitant]
     Dates: start: 20100510, end: 20100515
  10. CYANOCOBALAMIN [Concomitant]
     Dates: start: 20100414, end: 20100514

REACTIONS (5)
  - Sepsis [Fatal]
  - Splenic infarction [Fatal]
  - Intestinal gangrene [Fatal]
  - Intestinal infarction [Fatal]
  - Intra-abdominal haemorrhage [Unknown]
